FAERS Safety Report 9868541 (Version 2)
Quarter: 2014Q1

REPORT INFORMATION
  Report Type: Spontaneous
  Country: ZA (occurrence: ZA)
  Receive Date: 20140204
  Receipt Date: 20140204
  Transmission Date: 20141002
  Serious: Yes (Other)
  Sender: FDA-Public Use
  Company Number: ZA-PFIZER INC-2014030625

PATIENT
  Age: 38 Year
  Sex: Female

DRUGS (2)
  1. PHENYTOIN [Suspect]
     Indication: GRAND MAL CONVULSION
     Dosage: 300 MG, DAILY
  2. IBUPROFEN [Interacting]
     Indication: RHEUMATIC DISORDER
     Dosage: 400 MG, 4X/DAY

REACTIONS (8)
  - Drug interaction [Recovered/Resolved]
  - Asterixis [Unknown]
  - Cerebellar ataxia [Recovered/Resolved]
  - Nausea [Unknown]
  - Headache [Unknown]
  - Nystagmus [Recovered/Resolved]
  - Tremor [Unknown]
  - Dyskinesia [Unknown]
